FAERS Safety Report 8158883-8 (Version None)
Quarter: 2012Q1

REPORT INFORMATION
  Report Type: 
  Country: None (occurrence: None)
  Receive Date: 20120223
  Receipt Date: 20120222
  Transmission Date: 20120608
  Serious: Yes (Other)
  Sender: FDA-Public Use
  Company Number: US-PFIZER INC-2012047348

PATIENT
  Sex: Female
  Weight: 82.54 kg

DRUGS (3)
  1. ZOLOFT [Suspect]
     Indication: ATTENTION DEFICIT/HYPERACTIVITY DISORDER
     Dosage: 100 MG, 2X/DAY
     Route: 048
  2. ZOLOFT [Suspect]
     Indication: ABNORMAL BEHAVIOUR
  3. WELLBUTRIN [Concomitant]
     Dosage: UNK

REACTIONS (3)
  - OBESITY [None]
  - OPTIC ISCHAEMIC NEUROPATHY [None]
  - OCULAR VASCULAR DISORDER [None]
